FAERS Safety Report 8992827 (Version 2)
Quarter: 2013Q1

REPORT INFORMATION
  Report Type: Spontaneous
  Country: US (occurrence: US)
  Receive Date: 20130102
  Receipt Date: 20130215
  Transmission Date: 20140127
  Serious: Yes (Disabling, Other)
  Sender: FDA-Public Use
  Company Number: US-SHIRE-ALL1-2012-06474

PATIENT
  Age: 8 Year
  Sex: Male
  Weight: 28.57 kg

DRUGS (2)
  1. VYVANSE [Suspect]
     Indication: ATTENTION DEFICIT/HYPERACTIVITY DISORDER
     Dosage: 30 MG, 1X/DAY:QD
     Route: 048
     Dates: start: 20121213, end: 20121214
  2. OTHER ANTIHISTAMINES FOR SYSTEMIC USE [Concomitant]
     Indication: SEASONAL ALLERGY
     Dosage: 5 MG, AS REQ^D
     Route: 048

REACTIONS (14)
  - Psychotic behaviour [Recovered/Resolved]
  - Hallucination, visual [Recovered/Resolved]
  - Depression [Not Recovered/Not Resolved]
  - Anxiety [Recovered/Resolved]
  - Tic [Recovered/Resolved]
  - Lethargy [Recovered/Resolved]
  - Impulsive behaviour [Recovered/Resolved]
  - Moaning [Recovered/Resolved]
  - Negativism [Recovered/Resolved]
  - Mood altered [Not Recovered/Not Resolved]
  - Sleep disorder [Not Recovered/Not Resolved]
  - Decreased appetite [Recovered/Resolved]
  - Tremor [Recovered/Resolved]
  - Dry mouth [Recovered/Resolved]
